FAERS Safety Report 24205178 (Version 1)
Quarter: 2024Q3

REPORT INFORMATION
  Report Type: Spontaneous
  Country: US (occurrence: US)
  Receive Date: 20240813
  Receipt Date: 20240813
  Transmission Date: 20241016
  Serious: Yes (Hospitalization)
  Sender: ELI LILLY AND CO
  Company Number: US-ELI_LILLY_AND_COMPANY-US202408005044

PATIENT
  Sex: Female

DRUGS (1)
  1. TERIPARATIDE [Suspect]
     Active Substance: TERIPARATIDE
     Indication: Product used for unknown indication
     Dosage: UNK UNK, UNKNOWN
     Route: 065
     Dates: start: 20240305

REACTIONS (6)
  - Pulmonary embolism [Unknown]
  - Oral contusion [Unknown]
  - Product dose omission issue [Unknown]
  - Expired product administered [Unknown]
  - Off label use [Unknown]
  - Calciphylaxis [Unknown]

NARRATIVE: CASE EVENT DATE: 20240305
